FAERS Safety Report 8902986 (Version 2)
Quarter: 2012Q4

REPORT INFORMATION
  Report Type: 
  Country: US (occurrence: US)
  Receive Date: 20121113
  Receipt Date: 20121211
  Transmission Date: 20130627
  Serious: No
  Sender: FDA-Public Use
  Company Number: US-PFIZER INC-2012279051

PATIENT
  Age: 19 Month
  Sex: Male
  Weight: 11.6 kg

DRUGS (8)
  1. PANTOPRAZOLE [Suspect]
     Dosage: UNK
     Route: 065
  2. FAMOTIDINE [Interacting]
     Dosage: UNK
     Route: 065
  3. SUCRALFATE [Interacting]
     Dosage: UNK
  4. POSACONAZOLE [Interacting]
     Indication: RHIZOPUS INFECTION
     Dosage: 120 mg/kg, 1x/day
  5. POSACONAZOLE [Interacting]
     Dosage: 3000 mg, 1x/day
     Route: 048
  6. POSACONAZOLE [Interacting]
     Dosage: 1500 mg, Daily
     Route: 048
  7. MICAFUNGIN [Concomitant]
     Dosage: UNK
  8. AMPHOTERICIN B [Concomitant]
     Dosage: UNK

REACTIONS (1)
  - Drug interaction [Unknown]
